FAERS Safety Report 12401508 (Version 3)
Quarter: 2017Q4

REPORT INFORMATION
  Report Type: Report from Study
  Country: JP (occurrence: JP)
  Receive Date: 20160525
  Receipt Date: 20171101
  Transmission Date: 20180320
  Serious: Yes (Life-Threatening)
  Sender: FDA-Public Use
  Company Number: PHJP2016JP013377

PATIENT
  Age: 85 Year
  Sex: Female

DRUGS (2)
  1. VELCADE [Suspect]
     Active Substance: BORTEZOMIB
     Indication: PLASMA CELL MYELOMA
     Dosage: 1 U, UNK
     Route: 065
     Dates: start: 20160418, end: 20160509
  2. FARYDAK [Suspect]
     Active Substance: PANOBINOSTAT
     Indication: PLASMA CELL MYELOMA
     Dosage: 10 MG, QD
     Route: 048
     Dates: start: 20160418, end: 20160509

REACTIONS (3)
  - Pyrexia [Unknown]
  - Interstitial lung disease [Not Recovered/Not Resolved]
  - Kussmaul respiration [Unknown]

NARRATIVE: CASE EVENT DATE: 20160509
